FAERS Safety Report 5312227-5 (Version None)
Quarter: 2007Q2

REPORT INFORMATION
  Report Type: 
  Country: None (occurrence: None)
  Receive Date: 20070430
  Receipt Date: 20061002
  Transmission Date: 20071010
  Serious: No
  Sender: FDA-Public Use
  Company Number: 2006UW19126

PATIENT
  Age: 76 Year
  Sex: Female
  Weight: 56.2 kg

DRUGS (7)
  1. NEXIUM [Suspect]
     Indication: GASTROOESOPHAGEAL REFLUX DISEASE
     Route: 048
  2. DEMADEX [Concomitant]
  3. LEVOXYL [Concomitant]
  4. M.V.I. [Concomitant]
  5. NORPACE [Concomitant]
  6. TRACHEER [Concomitant]
  7. VIAGRA [Concomitant]

REACTIONS (1)
  - SKIN DISCOLOURATION [None]
